FAERS Safety Report 17726512 (Version 1)
Quarter: 2020Q2

REPORT INFORMATION
  Report Type: Spontaneous
  Country: US (occurrence: US)
  Receive Date: 20200430
  Receipt Date: 20200430
  Transmission Date: 20200714
  Serious: No
  Sender: FDA-Public Use
  Company Number: US-ALVOGEN-2019-ALVOGEN-099273

PATIENT
  Age: 73 Year
  Sex: Male

DRUGS (2)
  1. NITROFURANTOIN MONOHYDRATE MACROCRYSTALS [Suspect]
     Active Substance: NITROFURANTOIN\NITROFURANTOIN MONOHYDRATE
     Indication: URINARY TRACT INFECTION
     Dosage: 1 PACKAGE AND PACKAGE SIZE WAS 20
     Route: 048
     Dates: start: 20170109, end: 20170112
  2. LISINOPRIL. [Concomitant]
     Active Substance: LISINOPRIL
     Indication: PRODUCT USED FOR UNKNOWN INDICATION

REACTIONS (11)
  - Dizziness [Recovered/Resolved]
  - Amnesia [Recovered/Resolved]
  - Abdominal distension [Recovered/Resolved]
  - Back pain [Recovered/Resolved]
  - Erythema [Recovered/Resolved]
  - Drug hypersensitivity [Recovered/Resolved]
  - Paraesthesia [Recovered/Resolved]
  - Feeling abnormal [Recovered/Resolved]
  - Renal disorder [Recovered/Resolved]
  - Confusional state [Recovered/Resolved]
  - Blood urine present [Recovered/Resolved]

NARRATIVE: CASE EVENT DATE: 20170110
